FAERS Safety Report 9525197 (Version 1)
Quarter: 2013Q3

REPORT INFORMATION
  Report Type: Spontaneous
  Country: MX (occurrence: MX)
  Receive Date: 20130916
  Receipt Date: 20130916
  Transmission Date: 20140515
  Serious: Yes (Hospitalization)
  Sender: FDA-Public Use
  Company Number: PHHY2013MX101920

PATIENT
  Age: 76 Year
  Sex: Female

DRUGS (2)
  1. EXELON PATCH [Suspect]
     Indication: DEMENTIA ALZHEIMER^S TYPE
     Dosage: 4.6 MG, (5 CM2), DAILY
     Route: 062
     Dates: start: 201308
  2. TENORMIN [Concomitant]
     Indication: HYPERTENSION
     Dosage: 1 DF, DAILY

REACTIONS (3)
  - Salmonellosis [Recovered/Resolved]
  - Vomiting [Recovered/Resolved]
  - Diarrhoea [Recovered/Resolved]
